FAERS Safety Report 7406815-X (Version None)
Quarter: 2011Q2

REPORT INFORMATION
  Report Type: 
  Country: None (occurrence: None)
  Receive Date: 20110406
  Receipt Date: 20110406
  Transmission Date: 20111010
  Serious: Yes (Disabling, Other)
  Sender: FDA-Public Use
  Company Number: None

PATIENT
  Age: 53 Year
  Sex: Female
  Weight: 58.514 kg

DRUGS (1)
  1. REMBRANDT 2 HOUR WHITENING KIT TOPICAL [Suspect]
     Indication: TOOTH DISCOLOURATION
     Dosage: TOPICAL
     Dates: start: 20110319, end: 20110319

REACTIONS (5)
  - OEDEMA MOUTH [None]
  - PAIN [None]
  - ORAL INFECTION [None]
  - CHEMICAL INJURY [None]
  - STOMATITIS [None]
